FAERS Safety Report 18437380 (Version 2)
Quarter: 2023Q4

REPORT INFORMATION
  Report Type: Spontaneous
  Country: CZ (occurrence: CZ)
  Receive Date: 20201028
  Receipt Date: 20231004
  Transmission Date: 20240110
  Serious: Yes (Death, Life-Threatening, Hospitalization, Other)
  Sender: FDA-Public Use
  Company Number: CZ-PFIZER INC-2020414424

PATIENT
  Age: 51 Year
  Sex: Male

DRUGS (1)
  1. INOTUZUMAB OZOGAMICIN [Suspect]
     Active Substance: INOTUZUMAB OZOGAMICIN
     Indication: Acute lymphocytic leukaemia
     Dosage: UNK, CYCLIC (2 CYCLES)
     Dates: start: 202006, end: 202007

REACTIONS (21)
  - Multiple organ dysfunction syndrome [Fatal]
  - Respiratory failure [Unknown]
  - Anuria [Unknown]
  - Atrial fibrillation [Not Recovered/Not Resolved]
  - Ileus paralytic [Unknown]
  - Aspiration [Unknown]
  - Pneumonia fungal [Unknown]
  - Venoocclusive liver disease [Unknown]
  - Thrombocytopenia [Unknown]
  - Febrile neutropenia [Unknown]
  - Hypogammaglobulinaemia [Unknown]
  - Renal failure [Unknown]
  - Pancytopenia [Unknown]
  - Cytokine release syndrome [Unknown]
  - Tremor [Unknown]
  - Confusional state [Unknown]
  - Gastrointestinal inflammation [Unknown]
  - Epistaxis [Unknown]
  - Cardiovascular disorder [Unknown]
  - Haematotoxicity [Unknown]
  - Mucosal haemorrhage [Unknown]

NARRATIVE: CASE EVENT DATE: 20200101
